FAERS Safety Report 12318003 (Version 1)
Quarter: 2016Q2

REPORT INFORMATION
  Report Type: Spontaneous
  Country: US (occurrence: US)
  Receive Date: 20160429
  Receipt Date: 20160429
  Transmission Date: 20160815
  Serious: No
  Sender: FDA-Public Use
  Company Number: US-ACTAVIS-2016-02908

PATIENT
  Age: 39 Year
  Sex: Male

DRUGS (1)
  1. FLUVOXAMINE MALEATE. [Suspect]
     Active Substance: FLUVOXAMINE MALEATE
     Indication: PRODUCT USED FOR UNKNOWN INDICATION
     Dosage: 150 MG, DAILY
     Route: 048

REACTIONS (3)
  - Fatigue [Recovered/Resolved]
  - Depressed mood [Recovered/Resolved]
  - Obsessive-compulsive disorder [Recovered/Resolved]

NARRATIVE: CASE EVENT DATE: 201601
